FAERS Safety Report 6791354-X (Version None)
Quarter: 2010Q2

REPORT INFORMATION
  Report Type: 
  Country: None (occurrence: None)
  Receive Date: 20100624
  Receipt Date: 20100608
  Transmission Date: 20101027
  Serious: Yes (Death)
  Sender: FDA-Public Use
  Company Number: US-GENENTECH-300844

PATIENT
  Sex: Male
  Weight: 87.7 kg

DRUGS (1)
  1. RITUXIMAB [Suspect]
     Indication: RHEUMATOID ARTHRITIS
     Dosage: 1000 MG, Q6M
     Route: 042
     Dates: start: 20070821, end: 20080324

REACTIONS (1)
  - DEATH [None]
